FAERS Safety Report 22587990 (Version 1)
Quarter: 2023Q2

REPORT INFORMATION
  Report Type: Other
  Country: US (occurrence: None)
  Receive Date: 20230612
  Receipt Date: 20230612
  Transmission Date: 20230722
  Serious: Yes (Hospitalization, Other)
  Sender: FDA-Public Use
  Company Number: US-ROCHE-3363345

PATIENT
  Age: 61 Year
  Sex: Female
  Weight: 52.21 kg

DRUGS (10)
  1. XOLAIR [Suspect]
     Active Substance: OMALIZUMAB
     Indication: Idiopathic urticaria
     Dosage: VIAL, 2 SHOTS, ONE IN EACH ARM, DATE OF SERVICE: 22-DEC-2020
     Route: 058
  2. XOLAIR [Suspect]
     Active Substance: OMALIZUMAB
     Dosage: 2 SHOTS, ONE IN EACH ARM
     Route: 058
     Dates: end: 201811
  3. XOLAIR [Suspect]
     Active Substance: OMALIZUMAB
     Dosage: VIAL
     Route: 058
     Dates: start: 20140506
  4. MIRTAZAPINE [Concomitant]
     Active Substance: MIRTAZAPINE
     Indication: Hypertension
     Route: 048
  5. ALBUTEROL [Concomitant]
     Active Substance: ALBUTEROL
     Indication: Cough
     Dosage: 1-2 PUFFS, AS NEEDED ;ONGOING: NO
     Route: 055
  6. AMLODIPINE [Concomitant]
     Active Substance: AMLODIPINE BESYLATE
     Indication: Hypertension
     Dosage: IN THE MORNING ;ONGOING: YES
     Route: 048
  7. ASPIRIN [Concomitant]
     Active Substance: ASPIRIN
     Route: 048
  8. BUDESONIDE [Concomitant]
     Active Substance: BUDESONIDE
     Indication: Cough
     Dosage: IN THE MORNING AND AT NIGHT ;ONGOING: NO
     Route: 055
  9. HYDROXYCHLOROQUINE [Concomitant]
     Active Substance: HYDROXYCHLOROQUINE
     Route: 048
  10. MECLIZINE [Concomitant]
     Active Substance: MECLIZINE HYDROCHLORIDE
     Indication: Dizziness
     Route: 048

REACTIONS (4)
  - Anaphylactic reaction [Recovered/Resolved]
  - Pharyngeal swelling [Recovered/Resolved]
  - Diabetic coma [Unknown]
  - Gait disturbance [Recovered/Resolved]

NARRATIVE: CASE EVENT DATE: 20190601
